FAERS Safety Report 19972710 (Version 2)
Quarter: 2022Q3

REPORT INFORMATION
  Report Type: Spontaneous
  Country: US (occurrence: US)
  Receive Date: 20211019
  Receipt Date: 20220905
  Transmission Date: 20221027
  Serious: No
  Sender: FDA-Public Use
  Company Number: US-HORIZON THERAPEUTICS-HZN-2021-004890

PATIENT
  Sex: Female

DRUGS (1)
  1. PROCYSBI [Suspect]
     Active Substance: CYSTEAMINE BITARTRATE
     Indication: Cystinosis
     Dosage: 75 MG (PILLS)
     Route: 065

REACTIONS (4)
  - Illness [Unknown]
  - Laboratory test abnormal [Unknown]
  - Blood creatinine increased [Unknown]
  - Vomiting [Unknown]
